FAERS Safety Report 9337303 (Version 1)
Quarter: 2013Q2

REPORT INFORMATION
  Report Type: Spontaneous
  Country: US (occurrence: US)
  Receive Date: 20130607
  Receipt Date: 20130607
  Transmission Date: 20140414
  Serious: Yes (Other)
  Sender: FDA-Public Use
  Company Number: US-AMGEN-USASP2013037046

PATIENT
  Age: 69 Year
  Sex: Female
  Weight: 105.22 kg

DRUGS (7)
  1. PROLIA [Suspect]
     Indication: OSTEOPOROSIS POSTMENOPAUSAL
     Dosage: 60 MG, UNK
     Route: 058
     Dates: start: 20130503
  2. ANTIDEPRESSANTS [Concomitant]
  3. VITAMIN D                          /00107901/ [Concomitant]
  4. MULTIVITAMIN                       /00097801/ [Concomitant]
  5. MAGNESIUM [Concomitant]
  6. METAMUCIL                          /00029101/ [Concomitant]
  7. ANTIHYPERTENSIVES [Concomitant]

REACTIONS (3)
  - Upper limb fracture [Not Recovered/Not Resolved]
  - Back pain [Unknown]
  - Pain in extremity [Unknown]
